FAERS Safety Report 4575198-5 (Version None)
Quarter: 2005Q1

REPORT INFORMATION
  Report Type: 
  Country: None (occurrence: None)
  Receive Date: 20050208
  Receipt Date: 20041109
  Transmission Date: 20050727
  Serious: Yes (Life-Threatening, Hospitalization)
  Sender: FDA-Public Use
  Company Number: US-MERCK-0411USA01989

PATIENT
  Age: 76 Year
  Sex: Male

DRUGS (3)
  1. VIOXX [Suspect]
     Indication: OSTEOARTHRITIS
     Route: 048
     Dates: start: 20010129, end: 20010220
  2. VIOXX [Suspect]
     Route: 048
     Dates: start: 20010524, end: 20040520
  3. VIOXX [Suspect]
     Route: 048
     Dates: start: 20040803, end: 20040801

REACTIONS (38)
  - ALCOHOLISM [None]
  - ANAEMIA MACROCYTIC [None]
  - AORTIC STENOSIS [None]
  - AORTIC VALVE SCLEROSIS [None]
  - BIFASCICULAR BLOCK [None]
  - BLOOD MAGNESIUM DECREASED [None]
  - BUNDLE BRANCH BLOCK LEFT [None]
  - BUNDLE BRANCH BLOCK RIGHT [None]
  - CARDIAC FAILURE CONGESTIVE [None]
  - CEREBROVASCULAR ACCIDENT [None]
  - CHRONIC OBSTRUCTIVE AIRWAYS DISEASE EXACERBATED [None]
  - CHRONIC OBSTRUCTIVE PULMONARY DISEASE [None]
  - COLONIC POLYP [None]
  - CONFUSIONAL STATE [None]
  - CONGESTIVE CARDIOMYOPATHY [None]
  - CONTUSION [None]
  - DEFICIENCY ANAEMIA [None]
  - DEPRESSION [None]
  - ELECTROCARDIOGRAM ST SEGMENT DEPRESSION [None]
  - FAECAL OCCULT BLOOD POSITIVE [None]
  - FALL [None]
  - HAEMORRHOIDS [None]
  - HEADACHE [None]
  - HYPERTENSION [None]
  - HYPOTENSION [None]
  - INSOMNIA [None]
  - LIPOMA [None]
  - MITRAL VALVE CALCIFICATION [None]
  - MITRAL VALVE INCOMPETENCE [None]
  - PEPTIC ULCER [None]
  - PLEURAL EFFUSION [None]
  - RENAL FAILURE [None]
  - SICK SINUS SYNDROME [None]
  - SOMNOLENCE [None]
  - SUPRAVENTRICULAR EXTRASYSTOLES [None]
  - SYNCOPE [None]
  - TRANSIENT ISCHAEMIC ATTACK [None]
  - VENTRICULAR EXTRASYSTOLES [None]
